FAERS Safety Report 17034990 (Version 1)
Quarter: 2019Q4

REPORT INFORMATION
  Report Type: Spontaneous
  Country: US (occurrence: US)
  Receive Date: 20191015
  Receipt Date: 20191015
  Transmission Date: 20200122
  Serious: Yes (Death)
  Sender: FDA-Public Use
  Company Number: None

PATIENT
  Age: 46 Year
  Sex: Male

DRUGS (2)
  1. SOFOS/VELPAT [Suspect]
     Active Substance: SOFOSBUVIR\VELPATASVIR
     Indication: CHRONIC HEPATITIS C
     Dosage: ?          OTHER DOSE:400MG-100MG;?
     Route: 048
     Dates: start: 20190911
  2. XIFAXAN [Suspect]
     Active Substance: RIFAXIMIN

REACTIONS (1)
  - Death [None]

NARRATIVE: CASE EVENT DATE: 20191009
